FAERS Safety Report 7576299-X (Version None)
Quarter: 2011Q2

REPORT INFORMATION
  Report Type: 
  Country: None (occurrence: None)
  Receive Date: 20110628
  Receipt Date: 20090625
  Transmission Date: 20111010
  Serious: Yes (Hospitalization, Other)
  Sender: FDA-Public Use
  Company Number: US-BAYER-200924299NA

PATIENT
  Age: 64 Year
  Sex: Male
  Weight: 152.7 kg

DRUGS (20)
  1. CARDIZEM CD [Concomitant]
     Dosage: 360MG
     Route: 048
     Dates: start: 20020101
  2. LANOXIN [Concomitant]
     Dosage: 0.125 MG, QD
     Route: 048
     Dates: start: 20030101
  3. LISINOPRIL [Concomitant]
     Dosage: 40 MG, QD
     Route: 048
     Dates: start: 20020101, end: 20041101
  4. HYDROCHLOROTHIAZIDE [Concomitant]
     Dosage: 25 MG, QD
     Route: 048
  5. ZOCOR [Concomitant]
     Dosage: 20 MG, QD
     Route: 048
     Dates: start: 20020101
  6. TRASYLOL [Suspect]
     Indication: CARDIAC ABLATION
     Dosage: LOADING DOSE - GIVEN, BUT NOT SPECIFIED
     Route: 042
     Dates: start: 20041104, end: 20041104
  7. HUMALOG [Concomitant]
     Dosage: 55 UNITS IN AM
     Route: 058
     Dates: start: 19900101
  8. COUMADIN [Concomitant]
     Dosage: 5 MG, QD
     Route: 048
  9. ACCUPRIL [Concomitant]
     Dosage: 45 MG, QD
     Route: 048
  10. FRESH FROZEN PLASMA [Concomitant]
     Dosage: 4 U, UNK
     Dates: start: 20041104
  11. HEPARIN [Concomitant]
     Dosage: 42000 U, UNK
     Route: 042
     Dates: start: 20041104, end: 20041104
  12. WHOLE BLOOD [Concomitant]
     Dosage: 2 U, UNK
     Dates: start: 20041104
  13. TRASYLOL [Suspect]
     Indication: PRODUCT USED FOR UNKNOWN INDICATION
     Dosage: TEST DOSE - 1ML PRE-OP
     Route: 042
     Dates: start: 20041104, end: 20041104
  14. RED BLOOD CELLS [Concomitant]
     Dosage: 6 U, UNK
     Dates: start: 20041104
  15. PLATELETS [Concomitant]
     Dosage: 10 U, UNK
     Dates: start: 20041104
  16. GLUCOPHAGE [Concomitant]
     Dosage: 1,000 TWICE DAILY
     Route: 048
  17. HUMALOG [Concomitant]
     Dosage: 40 UNITS IN PM
     Route: 058
     Dates: start: 19900101
  18. AMIODARONE HCL [Concomitant]
     Dosage: 200 MG, QD
     Route: 048
     Dates: start: 20020101
  19. DILTIAZEM [Concomitant]
     Dosage: 180 MG, QD
     Route: 048
     Dates: start: 20030115
  20. AMARYL [Concomitant]
     Dosage: 8 MG, QD
     Route: 048
     Dates: start: 19900101

REACTIONS (12)
  - RENAL IMPAIRMENT [None]
  - CARDIOGENIC SHOCK [None]
  - RENAL INJURY [None]
  - STRESS [None]
  - ANXIETY [None]
  - INJURY [None]
  - FEAR [None]
  - ANHEDONIA [None]
  - RENAL FAILURE [None]
  - EMOTIONAL DISTRESS [None]
  - UNEVALUABLE EVENT [None]
  - PAIN [None]
